FAERS Safety Report 9636598 (Version 1)
Quarter: 2013Q4

REPORT INFORMATION
  Report Type: Report from Study
  Country: CA (occurrence: CA)
  Receive Date: 20131021
  Receipt Date: 20131021
  Transmission Date: 20140711
  Serious: Yes (Hospitalization, Other)
  Sender: FDA-Public Use
  Company Number: CA-ABBVIE-13P-028-1158557-00

PATIENT
  Age: 31 Year
  Sex: Female

DRUGS (2)
  1. HUMIRA [Suspect]
     Indication: CROHN^S DISEASE
     Route: 058
     Dates: start: 20101125, end: 201102
  2. HUMIRA [Suspect]
     Route: 058
     Dates: start: 201103

REACTIONS (4)
  - Gastrointestinal obstruction [Recovered/Resolved]
  - Faecal vomiting [Recovered/Resolved]
  - Drug ineffective [Unknown]
  - Abdominal mass [Not Recovered/Not Resolved]
